FAERS Safety Report 25873097 (Version 1)
Quarter: 2025Q4

REPORT INFORMATION
  Report Type: Spontaneous
  Country: US (occurrence: None)
  Receive Date: 20251002
  Receipt Date: 20251002
  Transmission Date: 20260117
  Serious: Yes (Hospitalization)
  Sender: FDA-CTU
  Company Number: None

PATIENT
  Age: 16 Year
  Sex: Male
  Weight: 72.6 kg

DRUGS (1)
  1. BUSULFAN [Suspect]
     Active Substance: BUSULFAN
     Dates: end: 20250323

REACTIONS (1)
  - Lymphocyte count decreased [None]

NARRATIVE: CASE EVENT DATE: 20250325
